FAERS Safety Report 9008717 (Version 2)
Quarter: 2013Q1

REPORT INFORMATION
  Report Type: Report from Study
  Country: FR (occurrence: FR)
  Receive Date: 20130111
  Receipt Date: 20130211
  Transmission Date: 20140127
  Serious: Yes (Hospitalization)
  Sender: FDA-Public Use
  Company Number: FR-EISAI INC-E7389-03429-CLI-FR

PATIENT
  Age: 62 Year
  Sex: Male
  Weight: 98 kg

DRUGS (5)
  1. E7389 (BOLD) [Suspect]
     Indication: LUNG NEOPLASM MALIGNANT
     Route: 041
     Dates: start: 20120215
  2. XANAX [Concomitant]
     Indication: DEPRESSION
     Route: 048
     Dates: start: 20120813
  3. DIAMICRON [Concomitant]
     Indication: TYPE 2 DIABETES MELLITUS
     Route: 048
     Dates: start: 2012
  4. COVERSYL [Concomitant]
     Indication: HYPERTENSION
     Route: 048
     Dates: start: 2012
  5. BI PROFENID [Concomitant]
     Indication: MUSCULOSKELETAL PAIN
     Route: 048
     Dates: start: 20120606

REACTIONS (3)
  - Gastric ulcer [Not Recovered/Not Resolved]
  - Renal failure [Recovered/Resolved]
  - Gastritis [Recovered/Resolved]
